FAERS Safety Report 13418946 (Version 2)
Quarter: 2017Q2

REPORT INFORMATION
  Report Type: Report from Study
  Country: BR (occurrence: BR)
  Receive Date: 20170407
  Receipt Date: 20170424
  Transmission Date: 20170830
  Serious: Yes (Hospitalization)
  Sender: FDA-Public Use
  Company Number: PHHY2017BR050311

PATIENT
  Sex: Female
  Weight: 82 kg

DRUGS (4)
  1. BELIMUMAB [Suspect]
     Active Substance: BELIMUMAB
     Indication: PRODUCT USED FOR UNKNOWN INDICATION
     Route: 065
  2. COSENTYX [Suspect]
     Active Substance: SECUKINUMAB
     Indication: PSORIATIC ARTHROPATHY
     Dosage: 300 MG, QW/IN TRANSITION FROM LOADING DOSE APPLICATION TO MAINTENANCE APLLICATION
     Route: 058
     Dates: start: 20170316
  3. COSENTYX [Suspect]
     Active Substance: SECUKINUMAB
     Dosage: 300 MG, QW
     Route: 058
     Dates: start: 20170323
  4. COSENTYX [Suspect]
     Active Substance: SECUKINUMAB
     Dosage: 300 MG, QW
     Route: 058
     Dates: start: 20170413

REACTIONS (5)
  - Pain in extremity [Unknown]
  - Swelling [Recovering/Resolving]
  - Erythema [Recovering/Resolving]
  - Thrombosis [Recovering/Resolving]
  - Weight increased [Unknown]
